FAERS Safety Report 9203459 (Version 5)
Quarter: 2016Q1

REPORT INFORMATION
  Report Type: Spontaneous
  Country: US (occurrence: US)
  Receive Date: 20130402
  Receipt Date: 20160118
  Transmission Date: 20160526
  Serious: No
  Sender: FDA-Public Use
  Company Number: US-PFIZER INC-2013102843

PATIENT
  Age: 46 Year
  Sex: Male

DRUGS (14)
  1. ASPIRIN. [Concomitant]
     Active Substance: ASPIRIN
     Indication: CARDIAC DISORDER
     Dosage: 81 MG, 1X/DAILY (1 PM)
     Dates: start: 200107
  2. CYMBALTA [Concomitant]
     Active Substance: DULOXETINE HYDROCHLORIDE
     Indication: DEPRESSION
     Dosage: 60 MG, 2 DAILY (2 AM)
     Dates: start: 200807
  3. RAMIPRIL. [Concomitant]
     Active Substance: RAMIPRIL
     Indication: RENAL DISORDER
     Dosage: 5 MG, 1X/DAILY (1 AM)
     Dates: start: 200807
  4. DHEA [Concomitant]
     Active Substance: PRASTERONE
     Indication: IMMUNE SYSTEM DISORDER
     Dosage: 25 MG, 1 DAILY (1 AM)
     Dates: start: 200807
  5. ATORVASTATIN [Concomitant]
     Active Substance: ATORVASTATIN
     Indication: BLOOD CHOLESTEROL ABNORMAL
     Dosage: 40 MG, 1X/DAY (1 AM)
     Dates: start: 200807
  6. LYRICA [Suspect]
     Active Substance: PREGABALIN
     Indication: DIABETIC NEUROPATHY
     Dosage: 200 MG, 3X/DAY
  7. LYRICA [Suspect]
     Active Substance: PREGABALIN
     Dosage: 300 MG, 2X/DAY
     Route: 048
     Dates: start: 20151110
  8. FOLIC ACID. [Concomitant]
     Active Substance: FOLIC ACID
     Indication: NEURALGIA
     Dosage: 1 MG, 1X/DAY (1 AM)
     Dates: start: 200807
  9. ALEVE [Concomitant]
     Active Substance: NAPROXEN SODIUM
     Indication: PAIN
     Dosage: 220 MG, AS NEEDED
     Dates: start: 200807
  10. APIDRA [Concomitant]
     Active Substance: INSULIN GLULISINE
     Indication: DIABETES MELLITUS MANAGEMENT
     Dosage: UNK
     Dates: start: 200807
  11. SILVADENE [Concomitant]
     Active Substance: SILVER SULFADIAZINE
     Indication: DECUBITUS ULCER
     Dosage: UNK, 2X/DAY (1AM) (1PM) AS NEEDED
     Dates: start: 200807
  12. LYRICA [Suspect]
     Active Substance: PREGABALIN
     Indication: NEURALGIA
     Dosage: 300 MG, 2X/DAY
     Dates: start: 200607
  13. LIPITOR [Suspect]
     Active Substance: ATORVASTATIN CALCIUM
     Indication: DIABETES MELLITUS
     Dosage: 40 MG, 1X/DAY
     Dates: start: 200107
  14. VITAMIN D3 [Concomitant]
     Active Substance: CHOLECALCIFEROL
     Indication: HYPOVITAMINOSIS
     Dosage: 2000 IU, 1X/DAY (1 AM)
     Dates: start: 200807

REACTIONS (16)
  - Diarrhoea [Unknown]
  - Malaise [Not Recovered/Not Resolved]
  - Drug effect incomplete [Unknown]
  - Dizziness [Unknown]
  - Disturbance in attention [Unknown]
  - Arthralgia [Unknown]
  - Myalgia [Unknown]
  - Fatigue [Unknown]
  - Somnolence [Unknown]
  - Asthenia [Unknown]
  - Activities of daily living impaired [Unknown]
  - Nasopharyngitis [Not Recovered/Not Resolved]
  - Influenza [Unknown]
  - Speech disorder [Unknown]
  - Chills [Unknown]
  - Cough [Not Recovered/Not Resolved]

NARRATIVE: CASE EVENT DATE: 200501
